FAERS Safety Report 7487433-4 (Version None)
Quarter: 2011Q2

REPORT INFORMATION
  Report Type: 
  Country: None (occurrence: None)
  Receive Date: 20110510
  Receipt Date: 20110419
  Transmission Date: 20111010
  Serious: Yes (Disabling)
  Sender: FDA-Public Use
  Company Number: JP-2011-10540

PATIENT
  Age: 90 Year
  Sex: Male
  Weight: 57.9 kg

DRUGS (14)
  1. ASPIRIN [Concomitant]
  2. HOKUNALIN:TAPE (TULOBUTEROL) TRANSDERMAL PATCH [Concomitant]
  3. SAMSCA [Suspect]
     Indication: CARDIAC FAILURE
     Dosage: 7.5 MG MILLIGRAM(S), QD, ORAL
     Route: 048
     Dates: start: 20110317, end: 20110320
  4. UNIPHYL LA (THEOPHYLLINE) TABLET [Concomitant]
  5. ITOROL (ISOSORBIDE MONONITRATE) TABLET [Concomitant]
  6. ALDACTONE [Concomitant]
  7. TANADOPA (DOCARPAMINE) GRANULES [Concomitant]
  8. SPIRIVA (TIOTROPIUM BROMIDE HYDRATE) INHALATION [Concomitant]
  9. THYRADIN S (LEVOTHYROXINE SODIUM) TABLET [Concomitant]
  10. LASIX [Concomitant]
  11. METHYCOBAL (MECOBALAMIN) TABLET [Concomitant]
  12. SIGMART (NICORANDIL) TABLET [Concomitant]
  13. PREDONINE (PREDNISOLONE) TABLET [Concomitant]
  14. TAKEPRON (LANSOPRAZOLE) [Concomitant]

REACTIONS (4)
  - CEREBRAL ARTERY EMBOLISM [None]
  - APALLIC SYNDROME [None]
  - PNEUMONIA ASPIRATION [None]
  - THERAPEUTIC RESPONSE DECREASED [None]
